FAERS Safety Report 8720729 (Version 2)
Quarter: 2015Q2

REPORT INFORMATION
  Report Type: Report from Study
  Country: US (occurrence: US)
  Receive Date: 20120813
  Receipt Date: 20150624
  Transmission Date: 20150821
  Serious: Yes (Other)
  Sender: FDA-Public Use
  Company Number: US-ROCHE-1099772

PATIENT
  Sex: Male

DRUGS (3)
  1. TYLENOL #2 (UNITED STATES) [Concomitant]
  2. ACETYLSALICYLIC ACID [Concomitant]
     Active Substance: ASPIRIN
     Route: 048
  3. ACTIVASE [Suspect]
     Active Substance: ALTEPLASE
     Indication: ACUTE MYOCARDIAL INFARCTION
     Route: 042

REACTIONS (4)
  - Pain [Unknown]
  - Headache [Unknown]
  - Dyspnoea [Unknown]
  - Paraesthesia [Unknown]
